FAERS Safety Report 6190482-X (Version None)
Quarter: 2009Q2

REPORT INFORMATION
  Report Type: 
  Country: None (occurrence: None)
  Receive Date: 20090514
  Receipt Date: 20090505
  Transmission Date: 20091009
  Serious: Yes (Hospitalization)
  Sender: FDA-Public Use
  Company Number: US-BAYER-200919099NA

PATIENT
  Age: 72 Year
  Sex: Female
  Weight: 67 kg

DRUGS (13)
  1. NEXAVAR [Suspect]
     Indication: LUNG CARCINOMA CELL TYPE UNSPECIFIED STAGE IV
     Dosage: TOTAL DAILY DOSE: 400 MG  UNIT DOSE: 200 MG
     Route: 048
     Dates: start: 20090101, end: 20090422
  2. TAXOTERE [Suspect]
     Indication: LUNG CARCINOMA CELL TYPE UNSPECIFIED STAGE IV
     Dosage: CYCLE 1 DAYS 1, 8, 15
     Route: 042
     Dates: start: 20090312, end: 20090401
  3. TAXOTERE [Suspect]
     Dosage: TOTAL DAILY DOSE: 50 MG
     Route: 042
     Dates: start: 20090408, end: 20090415
  4. ALOXI [Concomitant]
     Indication: PREMEDICATION
     Dosage: WEEKLY X 3 DOSES
     Route: 042
  5. COMPAZINE [Concomitant]
     Indication: NAUSEA
     Dosage: EVERY 4-6 HOURS
     Route: 048
  6. DECADRON [Concomitant]
     Dosage: START THE DAY BEFORE, DAY OF, AND THE DAY AFTRE EACH CHEMOTHRAPY
     Route: 048
  7. DIOVAN [Concomitant]
     Dosage: 320/25
     Route: 048
  8. IMODIUM [Concomitant]
     Indication: DIARRHOEA
  9. LORTAB [Concomitant]
     Indication: PAIN
     Route: 048
  10. MAGNESIUM SULFATE [Concomitant]
     Route: 048
  11. PHOS-MAK-NAK [Concomitant]
     Route: 048
  12. POTASSIUM CHLORIDE [Concomitant]
     Route: 048
  13. PROVERA [Concomitant]
     Dosage: TOTAL DAILY DOSE: 10 MG
     Route: 048

REACTIONS (1)
  - EMBOLIC STROKE [None]
